FAERS Safety Report 6745529-6 (Version None)
Quarter: 2010Q2

REPORT INFORMATION
  Report Type: 
  Country: None (occurrence: None)
  Receive Date: 20100526
  Receipt Date: 20100526
  Transmission Date: 20101027
  Serious: Yes (Other)
  Sender: FDA-Public Use
  Company Number: None

PATIENT
  Age: 54 Year
  Sex: Female
  Weight: 55.3388 kg

DRUGS (1)
  1. RLC LABS NATURE-THROID NT-1, 65 MG RLC [Suspect]
     Indication: HYPOTHYROIDISM
     Dosage: 3 TABS DAILY ORAL
     Route: 048

REACTIONS (6)
  - ARTHRALGIA [None]
  - BONE PAIN [None]
  - BONE SWELLING [None]
  - JOINT SWELLING [None]
  - LACTOSE INTOLERANCE [None]
  - REACTION TO DRUG EXCIPIENTS [None]
